FAERS Safety Report 5877694-7 (Version None)
Quarter: 2008Q3

REPORT INFORMATION
  Report Type: 
  Country: None (occurrence: None)
  Receive Date: 20080911
  Receipt Date: 20080902
  Transmission Date: 20090109
  Serious: Yes (Hospitalization)
  Sender: FDA-Public Use
  Company Number: TW-JNJFOC-20080900097

PATIENT
  Age: 7 Decade
  Sex: Female

DRUGS (1)
  1. ULTRACET [Suspect]
     Indication: BACK PAIN
     Route: 065

REACTIONS (3)
  - FALL [None]
  - RENAL FAILURE [None]
  - URINARY INCONTINENCE [None]
